FAERS Safety Report 9067425 (Version 4)
Quarter: 2014Q1

REPORT INFORMATION
  Report Type: Spontaneous
  Country: US (occurrence: US)
  Receive Date: 20130129
  Receipt Date: 20140205
  Transmission Date: 20141002
  Serious: Yes (Hospitalization, Disabling, Other)
  Sender: FDA-Public Use
  Company Number: US-009507513-1301USA012602

PATIENT
  Sex: Female

DRUGS (5)
  1. FOSAMAX [Suspect]
     Indication: OSTEOPENIA
     Dosage: UNK
     Route: 048
     Dates: start: 1995, end: 2011
  2. FOSAMAX PLUS D [Suspect]
     Dosage: UNK
     Route: 048
     Dates: start: 1995, end: 2011
  3. ALENDRONATE SODIUM [Suspect]
     Dosage: UNK
     Route: 048
     Dates: start: 1995, end: 2011
  4. BONIVA [Concomitant]
     Indication: OSTEOPENIA
     Dosage: 150 MG, QM
     Dates: start: 20050912, end: 20101220
  5. ACTONEL [Concomitant]
     Indication: OSTEOPENIA
     Dosage: 35 MG, QW
     Dates: start: 1992, end: 20050912

REACTIONS (9)
  - Femur fracture [Not Recovered/Not Resolved]
  - Open reduction of fracture [Not Recovered/Not Resolved]
  - Lower limb fracture [Unknown]
  - Synovitis [Unknown]
  - Joint effusion [Unknown]
  - Spinal osteoarthritis [Unknown]
  - Hypertension [Unknown]
  - Venous insufficiency [Unknown]
  - Urinary retention [Recovered/Resolved]
